FAERS Safety Report 20435177 (Version 1)
Quarter: 2022Q1

REPORT INFORMATION
  Report Type: Spontaneous
  Country: NL (occurrence: NL)
  Receive Date: 20220206
  Receipt Date: 20220206
  Transmission Date: 20220424
  Serious: Yes (Hospitalization)
  Sender: FDA-Public Use
  Company Number: None

PATIENT
  Age: 61 Year
  Sex: Male
  Weight: 106 kg

DRUGS (8)
  1. CLOPIDOGREL BISULFATE [Interacting]
     Active Substance: CLOPIDOGREL BISULFATE
     Indication: Product used for unknown indication
     Dosage: TABLET, 75 MG (MILLIGRAM)
  2. ESOMEPRAZOLE [Interacting]
     Active Substance: ESOMEPRAZOLE
     Indication: Prophylaxis
     Dosage: 2X A DAY 1 PIECE
     Dates: start: 20201124
  3. BISOPROLOL/PERINDOPRIL-ARGININE TABLET 5/ 5MG / Brand name not specifi [Concomitant]
     Dosage: 2,5 MG
  4. BISOPROLOL FUMARATE [Concomitant]
     Active Substance: BISOPROLOL FUMARATE
     Dosage: 2,5 MG
  5. ROPINIROLE [Concomitant]
     Active Substance: ROPINIROLE
     Dosage: COATED TABLET, 0.25 MG (MILLIGRAMS)
  6. PANTOPRAZOLE [Concomitant]
     Active Substance: PANTOPRAZOLE
     Dosage: 40MG. IT WAS GIVEN ON JANUARY 18, 2021 AS A REPLACEMENT FOR ESOMEPRASOLE.
  7. SIMVASTATIN [Concomitant]
     Active Substance: SIMVASTATIN
     Dosage: 40 MG
  8. VALPROATE SODIUM [Concomitant]
     Active Substance: VALPROATE SODIUM
     Dosage: GASTRO-RESISTANT TABLET, 500 MG (MILLIGRAMS)

REACTIONS (7)
  - Extrasystoles [Recovered/Resolved]
  - Head discomfort [Recovered/Resolved]
  - Heart rate irregular [Recovered/Resolved]
  - Peripheral coldness [Recovering/Resolving]
  - Drug interaction [Unknown]
  - Headache [Recovered/Resolved]
  - Gynaecomastia [Not Recovered/Not Resolved]

NARRATIVE: CASE EVENT DATE: 20201208
